FAERS Safety Report 6766899-9 (Version None)
Quarter: 2010Q2

REPORT INFORMATION
  Report Type: 
  Country: None (occurrence: None)
  Receive Date: 20100611
  Receipt Date: 20100602
  Transmission Date: 20101027
  Serious: Yes (Hospitalization, Other)
  Sender: FDA-Public Use
  Company Number: US-WATSON-2010-06359

PATIENT
  Sex: Female
  Weight: 52.154 kg

DRUGS (10)
  1. LORAZEPAM [Suspect]
     Indication: ANXIETY
     Dosage: 7 - 8 MG, DAILY (PRESCRIBED TO TAKE 1 TABLET QID)
     Route: 048
     Dates: start: 20100505
  2. LORAZEPAM [Suspect]
     Indication: PANIC ATTACK
     Dosage: 7 - 8 MG, DAILY
     Route: 048
  3. LORAZEPAM [Suspect]
     Dosage: 3-4, 1 MG TABLETS AS NEEDED
     Route: 048
     Dates: start: 20070723, end: 20100504
  4. LORAZEPAM [Suspect]
     Dosage: ^USING UP TO  12 MG DAILY^ (PER PSYCHIATRIST_
     Route: 048
  5. IBUPROFEN [Concomitant]
     Indication: DYSMENORRHOEA
     Dosage: 3 TABLETS ONCE A DAY-ONLY DURING MENSTRUAL CYCLE OR OCCASIONALLY BACK PAIN
     Route: 048
     Dates: start: 19930101
  6. IBUPROFEN [Concomitant]
     Indication: BACK PAIN
  7. EFFEXOR [Concomitant]
     Indication: ANXIETY
     Dosage: ^1-2 TIMES DAILY (END DATE WAS 8 WEEKS OR MORE AS DID NOTHING FOR ANXIETY-DIDN'T HELP IT^)
     Route: 048
     Dates: start: 20070801
  8. ZOLOFT [Concomitant]
     Indication: ANXIETY
     Dosage: ^1-2 TIMES DAILY (END DATE WAS 8 WEEKS OR MORE AS DID NOTHING FOR ANXIETY-DIDN'T HELP IT^)
     Route: 048
     Dates: start: 20070901
  9. WELLBUTRIN [Concomitant]
     Indication: ANXIETY
     Dosage: ^1-2 TIMES DAILY (END DATE WAS 8 WEEKS OR MORE AS DID NOTHING FOR ANXIETY-DIDN'T HELP IT^)
     Route: 048
     Dates: start: 20080401
  10. PAXIL [Concomitant]
     Indication: ANXIETY
     Dosage: ^1-2 TIMES DAILY (END DATE WAS 8 WEEKS OR MORE AS DID NOTHING FOR ANXIETY-DIDN'T HELP IT^)
     Route: 048
     Dates: start: 20090801

REACTIONS (13)
  - ANXIETY [None]
  - CONDITION AGGRAVATED [None]
  - DRUG DEPENDENCE [None]
  - DRUG INEFFECTIVE [None]
  - DRUG SCREEN NEGATIVE [None]
  - DRUG TOLERANCE [None]
  - INTENTIONAL SELF-INJURY [None]
  - LETHARGY [None]
  - OVERDOSE [None]
  - PANIC ATTACK [None]
  - SUICIDAL BEHAVIOUR [None]
  - SUICIDAL IDEATION [None]
  - SUICIDE ATTEMPT [None]
